FAERS Safety Report 9761241 (Version 2)
Quarter: 2013Q4

REPORT INFORMATION
  Report Type: Other
  Country: ES (occurrence: ES)
  Receive Date: 20131216
  Receipt Date: 20131216
  Transmission Date: 20140711
  Serious: Yes (Hospitalization, Other)
  Sender: FDA-Public Use
  Company Number: ES-BRISTOL-MYERS SQUIBB COMPANY-19881978

PATIENT
  Age: 76 Year
  Sex: Male

DRUGS (4)
  1. METFORMIN HCL [Suspect]
     Indication: TYPE 2 DIABETES MELLITUS
  2. IBUPROFEN [Suspect]
     Indication: CHRONIC OBSTRUCTIVE PULMONARY DISEASE
  3. IBUPROFEN [Suspect]
     Indication: NEPHROLITHIASIS
  4. VILDAGLIPTIN [Suspect]
     Indication: TYPE 2 DIABETES MELLITUS

REACTIONS (5)
  - Metabolic acidosis [Unknown]
  - Haemodynamic instability [Unknown]
  - Renal impairment [Unknown]
  - Respiratory failure [Unknown]
  - Hyperkalaemia [Unknown]
